FAERS Safety Report 6844975-X (Version None)
Quarter: 2010Q3

REPORT INFORMATION
  Report Type: 
  Country: None (occurrence: None)
  Receive Date: 20100713
  Receipt Date: 20100629
  Transmission Date: 20110219
  Serious: Yes (Hospitalization, Other)
  Sender: FDA-Public Use
  Company Number: 2010SCPR001154

PATIENT
  Age: 70 Year
  Sex: Female
  Weight: 113.9 kg

DRUGS (2)
  1. RISPERIDONE [Suspect]
     Indication: TARDIVE DYSKINESIA
     Dosage: 0.5 MG, BID, 4 MG, QD
  2. GABAPENTIN [Concomitant]

REACTIONS (4)
  - BLOOD CHOLESTEROL INCREASED [None]
  - CONDITION AGGRAVATED [None]
  - HYPERTRIGLYCERIDAEMIA [None]
  - LOW DENSITY LIPOPROTEIN INCREASED [None]
